FAERS Safety Report 20921788 (Version 1)
Quarter: 2022Q2

REPORT INFORMATION
  Report Type: Spontaneous
  Country: CN (occurrence: CN)
  Receive Date: 20220606
  Receipt Date: 20220606
  Transmission Date: 20220721
  Serious: Yes (Other)
  Sender: FDA-Public Use
  Company Number: None

PATIENT
  Age: 49 Year
  Sex: Female
  Weight: 66.9 kg

DRUGS (4)
  1. CYCLOPHOSPHAMIDE [Suspect]
     Active Substance: CYCLOPHOSPHAMIDE
     Indication: Benign hydatidiform mole
     Dosage: 0.9 G, QD, EMA-CO REGIMEN CYCLOPHOSPHAMIDE (0.9 G) + SODIUM CHLORIDE (20 ML)
     Route: 041
     Dates: start: 20220502, end: 20220502
  2. VINCRISTINE SULFATE [Suspect]
     Active Substance: VINCRISTINE SULFATE
     Indication: Benign hydatidiform mole
     Dosage: 1.5 MG, QD, EMA-CO REGIMEN VINCRISTINE SULFATE (1.5 MG) + SODIUM CHLORIDE (500 ML)
     Route: 041
     Dates: start: 20220502, end: 20220502
  3. SODIUM CHLORIDE [Suspect]
     Active Substance: SODIUM CHLORIDE
     Indication: Medication dilution
     Dosage: 20 ML, QD, EMA-CO REGIMEN CYCLOPHOSPHAMIDE (0.9 G) + SODIUM CHLORIDE (20 ML)
     Route: 041
     Dates: start: 20220502, end: 20220502
  4. SODIUM CHLORIDE [Suspect]
     Active Substance: SODIUM CHLORIDE
     Dosage: 500 ML, QD, EMA-CO REGIMEN VINCRISTINE SULFATE (1.5 MG) + SODIUM CHLORIDE (500 ML)
     Route: 041
     Dates: start: 20220502, end: 20220502

REACTIONS (1)
  - Myocardial necrosis marker increased [Recovering/Resolving]

NARRATIVE: CASE EVENT DATE: 20220508
